FAERS Safety Report 9711837 (Version 3)
Quarter: 2014Q2

REPORT INFORMATION
  Report Type: Spontaneous
  Country: US (occurrence: US)
  Receive Date: 20131126
  Receipt Date: 20140510
  Transmission Date: 20141212
  Serious: No
  Sender: FDA-Public Use
  Company Number: US-BRISTOL-MYERS SQUIBB COMPANY-19115294

PATIENT
  Age: 55 Year
  Sex: Female
  Weight: 90.7 kg

DRUGS (3)
  1. BYDUREON [Suspect]
     Indication: TYPE 2 DIABETES MELLITUS
     Route: 058
     Dates: start: 201307
  2. METFORMIN HCL TABS 500MG [Concomitant]
     Dosage: 2 TABS
  3. GLIPIZIDE [Concomitant]

REACTIONS (4)
  - Headache [Unknown]
  - Palpitations [Unknown]
  - Feeling jittery [Unknown]
  - Fatigue [Unknown]
